FAERS Safety Report 4867397-X (Version None)
Quarter: 2005Q4

REPORT INFORMATION
  Report Type: 
  Country: None (occurrence: None)
  Receive Date: 20051222
  Receipt Date: 20051213
  Transmission Date: 20060501
  Serious: Yes (Other)
  Sender: FDA-Public Use
  Company Number: CHPA2003US02271

PATIENT
  Age: 45 Year
  Sex: Female
  Weight: 87.5 kg

DRUGS (33)
  1. EX-LAX LAXATIVE UNKNOWN FORMULA (NCH) [Suspect]
     Indication: WEIGHT CONTROL
     Dosage: ORAL
     Route: 048
     Dates: start: 19630101
  2. DULCOLAX [Suspect]
     Indication: WEIGHT CONTROL
     Dosage: ORAL
     Route: 048
     Dates: start: 19630101
  3. CORRECTOL [Suspect]
     Indication: WEIGHT CONTROL
     Dosage: ORAL
     Route: 048
     Dates: start: 19630101
  4. ALTACE [Concomitant]
  5. NEXIUM [Concomitant]
  6. GLUCOPHAGE [Concomitant]
  7. LASIX (FUROSEMIDE, FUROSEMIDE SODIUM) [Concomitant]
  8. POTASSIUM CHLORIDE [Concomitant]
  9. LISINOPRIL [Concomitant]
  10. ALLEGRA [Concomitant]
  11. ANTIVERT (MECLOZINE  HYDROCHLORIDE) [Concomitant]
  12. PHENERGAN (PROMETHAZINE HYDROCHLORIDE) [Concomitant]
  13. ZESTRIL [Concomitant]
  14. SURFAK (DOCUSATE CALCIUM) [Concomitant]
  15. DIABETA [Concomitant]
  16. CLARINEX (LORATADINE, PSEUDOEPHEDRINE SULFATE) [Concomitant]
  17. TOPROL-XL [Concomitant]
  18. CATAPRES [Concomitant]
  19. NORVASC [Concomitant]
  20. LABETALOL HCL [Concomitant]
  21. PROCARDIA XL [Concomitant]
  22. MOTRIN [Concomitant]
  23. ACETAMINOPHEN [Concomitant]
  24. VITAMINS [Concomitant]
  25. FOLIC ACID [Concomitant]
  26. VITAMIN B12 [Concomitant]
  27. HIGH FIBER DIET [Concomitant]
  28. HYDROCHLOROTHIAZIDE [Concomitant]
  29. MACROBID [Concomitant]
  30. LOPROX (CICLOPIROX OLAMINE) CREAM [Concomitant]
  31. PENLAC (CICLOPIROX) [Concomitant]
  32. METAMUCIL (ISPAGHULA, PLANTAGO OVATA) [Concomitant]
  33. MIRALAX [Concomitant]

REACTIONS (15)
  - ABDOMINAL PAIN [None]
  - ABDOMINAL PAIN LOWER [None]
  - CONSTIPATION [None]
  - DRUG DEPENDENCE [None]
  - DRUG EXPOSURE DURING PREGNANCY [None]
  - DRUG INEFFECTIVE [None]
  - ECONOMIC PROBLEM [None]
  - EMOTIONAL DISORDER [None]
  - GESTATIONAL DIABETES [None]
  - HAEMORRHOIDS [None]
  - INJURY [None]
  - INTRA-UTERINE DEATH [None]
  - PREGNANCY [None]
  - PREGNANCY INDUCED HYPERTENSION [None]
  - RECTAL HAEMORRHAGE [None]
